FAERS Safety Report 7727278-0 (Version None)
Quarter: 2011Q3

REPORT INFORMATION
  Report Type: 
  Country: None (occurrence: None)
  Receive Date: 20110831
  Receipt Date: 20110816
  Transmission Date: 20111222
  Serious: Yes (Hospitalization, Other)
  Sender: FDA-Public Use
  Company Number: 2011MA012004

PATIENT
  Age: 22 Year
  Sex: Female

DRUGS (3)
  1. CARBAMAZEPINE [Suspect]
     Indication: MANIA
     Dosage: 400 MG;QD
  2. RISPERIDONE [Concomitant]
  3. LITHIUM [Concomitant]

REACTIONS (6)
  - LETHARGY [None]
  - NIGHT SWEATS [None]
  - TACHYCARDIA [None]
  - CHILLS [None]
  - MYALGIA [None]
  - DRUG RASH WITH EOSINOPHILIA AND SYSTEMIC SYMPTOMS [None]
